FAERS Safety Report 16038073 (Version 1)
Quarter: 2019Q1

REPORT INFORMATION
  Report Type: Spontaneous
  Country: FR (occurrence: FR)
  Receive Date: 20190305
  Receipt Date: 20190305
  Transmission Date: 20190418
  Serious: Yes (Other)
  Sender: FDA-Public Use
  Company Number: FR-MYLANLABS-2019M1019110

PATIENT
  Age: 57 Year
  Sex: Male

DRUGS (1)
  1. PAROXETINE. [Suspect]
     Active Substance: PAROXETINE
     Indication: DEPRESSIVE SYMPTOM
     Dosage: 20 MILLIGRAM, QD
     Route: 048
     Dates: start: 201803

REACTIONS (4)
  - Hypochromic anaemia [Recovered/Resolved]
  - Haemorrhoidal haemorrhage [Recovered/Resolved]
  - Haemorrhage [Recovered/Resolved]
  - Microcytosis [Recovered/Resolved]

NARRATIVE: CASE EVENT DATE: 201803
